FAERS Safety Report 18512946 (Version 2)
Quarter: 2020Q4

REPORT INFORMATION
  Report Type: Spontaneous
  Country: HR (occurrence: HR)
  Receive Date: 20201117
  Receipt Date: 20201209
  Transmission Date: 20210114
  Serious: Yes (Hospitalization)
  Sender: FDA-Public Use
  Company Number: HR-MYLANLABS-2020M1094587

PATIENT
  Sex: Male
  Weight: 112 kg

DRUGS (37)
  1. EPLERENONE. [Suspect]
     Active Substance: EPLERENONE
     Dosage: 25 MG, UNKNOWN
     Route: 065
  2. SACUBITRIL W/VALSARTAN [Suspect]
     Active Substance: SACUBITRIL\VALSARTAN
     Indication: PRODUCT USED FOR UNKNOWN INDICATION
     Dosage: 100 MG, BID (49/51 MG)
     Route: 065
  3. ROSUVASTATIN. [Suspect]
     Active Substance: ROSUVASTATIN
     Dosage: 1 DF, UNKNOWN
     Route: 065
  4. ROSUVASTATIN. [Suspect]
     Active Substance: ROSUVASTATIN
     Dosage: 1 DF, UNKNOWN
     Route: 065
  5. AMIODARONE [Suspect]
     Active Substance: AMIODARONE
     Dosage: 1 DF, UNKNOWN
     Route: 065
  6. BISOPROLOL [Suspect]
     Active Substance: BISOPROLOL
     Dosage: 5 MG, BID
     Route: 065
  7. AMIODARONE [Suspect]
     Active Substance: AMIODARONE
     Dosage: 1 DF, UNKNOWN
     Route: 065
  8. FUROSEMIDE. [Suspect]
     Active Substance: FUROSEMIDE
     Indication: PRODUCT USED FOR UNKNOWN INDICATION
     Dosage: 40 MG, QD (2015-2016)
     Route: 065
  9. FUROSEMIDE. [Suspect]
     Active Substance: FUROSEMIDE
     Dosage: 40 MG, BID
     Route: 065
  10. FUROSEMIDE. [Suspect]
     Active Substance: FUROSEMIDE
     Dosage: 40 MILLIGRAM, PRN(40 MG, PRN)
     Route: 065
  11. ROSUVASTATIN. [Suspect]
     Active Substance: ROSUVASTATIN
     Dosage: 1 DF, UNKNOWN
     Route: 065
  12. EPLERENONE. [Suspect]
     Active Substance: EPLERENONE
     Dosage: 50 MG, UNKNOWN
     Route: 065
  13. AMIODARONE [Suspect]
     Active Substance: AMIODARONE
     Dosage: 1 DF, UNKNOWN
     Route: 065
  14. FUROSEMIDE. [Suspect]
     Active Substance: FUROSEMIDE
     Dosage: 40 MG, PRN
     Route: 065
  15. BISOPROLOL [Suspect]
     Active Substance: BISOPROLOL
     Dosage: 5 MG, BID
     Route: 065
  16. BISOPROLOL [Suspect]
     Active Substance: BISOPROLOL
     Dosage: 5 MG, BID
     Route: 065
  17. SACUBITRIL W/VALSARTAN [Suspect]
     Active Substance: SACUBITRIL\VALSARTAN
     Dosage: 200 MG, BID (97/103 MG)
     Route: 065
  18. ROSUVASTATIN. [Suspect]
     Active Substance: ROSUVASTATIN
     Indication: PRODUCT USED FOR UNKNOWN INDICATION
     Dosage: 1 DOSAGE FORM, QD (1 DF, QD (IN THE EVENING) (2015-2016))
     Route: 065
  19. ELIQUIS [Suspect]
     Active Substance: APIXABAN
     Indication: PRODUCT USED FOR UNKNOWN INDICATION
     Dosage: 10 MILLIGRAM, QD (5 MG, BID)
     Route: 065
  20. ELIQUIS [Suspect]
     Active Substance: APIXABAN
     Dosage: 10 MILLIGRAM, QD (5 MG, BID)
     Route: 065
  21. ELIQUIS [Suspect]
     Active Substance: APIXABAN
     Dosage: 10 MILLIGRAM, QD (5 MG, BID)
     Route: 065
  22. ELIQUIS [Suspect]
     Active Substance: APIXABAN
     Dosage: 10 MILLIGRAM, QD (5 MG, BID)
     Route: 065
  23. EPLERENONE. [Suspect]
     Active Substance: EPLERENONE
     Dosage: 50 MG, UNKNOWN
     Route: 065
  24. AMIODARONE [Suspect]
     Active Substance: AMIODARONE
     Indication: PRODUCT USED FOR UNKNOWN INDICATION
     Dosage: 1 DF, QD (IN THE MORNING)
     Route: 065
  25. ELIQUIS [Suspect]
     Active Substance: APIXABAN
     Dosage: 10 MILLIGRAM, QD (5 MG, BID)
     Route: 065
  26. EPLERENONE. [Suspect]
     Active Substance: EPLERENONE
     Indication: PRODUCT USED FOR UNKNOWN INDICATION
     Dosage: 25 MG, UNKNOWN (2015-2016)
     Route: 065
  27. SACUBITRIL W/VALSARTAN [Suspect]
     Active Substance: SACUBITRIL\VALSARTAN
     Dosage: 200 MG, BID (97/103 MG)
     Route: 065
  28. ROSUVASTATIN. [Suspect]
     Active Substance: ROSUVASTATIN
     Dosage: 1 DF, UNKNOWN
     Route: 065
  29. EPLERENONE. [Suspect]
     Active Substance: EPLERENONE
     Dosage: 50 MG, UNKNOWN
     Route: 065
  30. AMIODARONE [Suspect]
     Active Substance: AMIODARONE
     Dosage: 1 DF, UNKNOWN
     Route: 065
  31. FUROSEMIDE. [Suspect]
     Active Substance: FUROSEMIDE
     Dosage: 500 MG, BID (QUARTER OF A TABLET)
     Route: 065
  32. BISOPROLOL [Suspect]
     Active Substance: BISOPROLOL
     Indication: PRODUCT USED FOR UNKNOWN INDICATION
     Dosage: 5 MG, BID (2015-2016)
     Route: 065
  33. BISOPROLOL [Suspect]
     Active Substance: BISOPROLOL
     Dosage: 5 MG, BID
     Route: 065
  34. ROSUVASTATIN. [Suspect]
     Active Substance: ROSUVASTATIN
     Dosage: 1 DF, QD (IN THE EVENING)
     Route: 065
  35. EPLERENONE. [Suspect]
     Active Substance: EPLERENONE
     Dosage: 50 MG, UNKNOWN
     Route: 065
  36. FUROSEMIDE. [Suspect]
     Active Substance: FUROSEMIDE
     Dosage: 40 MG, BID
     Route: 065
  37. SACUBITRIL W/VALSARTAN [Suspect]
     Active Substance: SACUBITRIL\VALSARTAN
     Dosage: 200 MG, BID (97/103 MG)
     Route: 065

REACTIONS (4)
  - Chest discomfort [Unknown]
  - Atrial tachycardia [Recovered/Resolved]
  - Weight decreased [Unknown]
  - N-terminal prohormone brain natriuretic peptide increased [Unknown]
